FAERS Safety Report 5442126-X (Version None)
Quarter: 2007Q3

REPORT INFORMATION
  Report Type: 
  Country: None (occurrence: None)
  Receive Date: 20070904
  Receipt Date: 20070820
  Transmission Date: 20080115
  Serious: Yes (Other)
  Sender: FDA-Public Use
  Company Number: US-ROCHE-512874

PATIENT

DRUGS (5)
  1. CAPECITABINE [Suspect]
     Dosage: ARM A, 28 DAY CYCLE GIVEN TWICE A DAY ON DAYS 2-8 AND DAYS 16-22 NO THERAPY ADMINISTERED ON DAYS 9-+
     Route: 048
  2. CAPECITABINE [Suspect]
     Dosage: ARM A, 28 DAY CYCLE GIVEN TWICE A DAY ON DAYS 2-8 AND DAYS 16-22 NO THERAPY ADMINISTERED ON DAYS 9-+
     Route: 048
  3. CAPECITABINE [Suspect]
     Dosage: ARM A, 28 DAY CYCLE GIVEN TWICE A DAY ON DAYS 2-8 AND DAYS 16-22 NO THERAPY ADMINISTERED ON DAYS 9-+
     Route: 048
  4. CAPECITABINE [Suspect]
     Dosage: ARM A, 28 DAY CYCLE GIVEN TWICE A DAY ON DAYS 2-8 AND DAYS 16-22 NO THERAPY ADMINISTERED ON DAYS 9-+
     Route: 048
  5. IRINOTECAN HCL [Suspect]
     Dosage: ARM A INFUSION OVER 90 MINUTES
     Route: 042

REACTIONS (3)
  - ABDOMINAL PAIN [None]
  - MUSCLE SPASMS [None]
  - VOMITING [None]
